FAERS Safety Report 6547081-7 (Version None)
Quarter: 2009Q4

REPORT INFORMATION
  Report Type: 
  Country: None (occurrence: None)
  Receive Date: 20091215
  Receipt Date: 20081103
  Transmission Date: 20100525
  Serious: Yes (Other)
  Sender: FDA-Public Use
  Company Number: FEI2008-1402

PATIENT
  Age: 42 Year
  Sex: Female
  Weight: 80.7403 kg

DRUGS (2)
  1. PARAGARD T 380A [Suspect]
     Indication: CONTRACEPTION
     Dosage: INTRA-UTERINE
     Route: 015
     Dates: start: 20061212, end: 20080725
  2. SYNTHROID [Concomitant]

REACTIONS (6)
  - ABORTION SPONTANEOUS [None]
  - BREAST TENDERNESS [None]
  - FATIGUE [None]
  - NAUSEA [None]
  - POLLAKIURIA [None]
  - UNINTENDED PREGNANCY [None]
